FAERS Safety Report 6202183-X (Version None)
Quarter: 2009Q2

REPORT INFORMATION
  Report Type: 
  Country: None (occurrence: None)
  Receive Date: 20090526
  Receipt Date: 20090519
  Transmission Date: 20091009
  Serious: Yes (Hospitalization)
  Sender: FDA-Public Use
  Company Number: US-PFIZER INC-2005087176

PATIENT
  Sex: Female
  Weight: 64.6 kg

DRUGS (11)
  1. MARAVIROC [Suspect]
     Indication: HIV TEST POSITIVE
     Dosage: UNK
     Route: 048
     Dates: start: 20050509, end: 20050830
  2. IMMUNE GLOBULIN INTRAVENOUS (HUMAN) [Concomitant]
     Route: 042
     Dates: start: 20050425
  3. SODIUM CHLORIDE [Concomitant]
     Route: 042
  4. ACCUPRIL [Concomitant]
     Indication: NEPHROPATHY
     Route: 048
  5. DAPSONE [Concomitant]
     Indication: PROPHYLAXIS
     Route: 048
  6. TENOFOVIR [Concomitant]
     Route: 048
     Dates: start: 20050509
  7. ZIDOVUDINE [Concomitant]
     Route: 048
     Dates: start: 20050509
  8. LAMIVUDINE [Concomitant]
     Dates: start: 20050509
  9. ABACAVIR [Concomitant]
     Dates: start: 20050509
  10. ATAZANAVIR SULFATE [Concomitant]
     Dates: start: 20050509
  11. RITONAVIR [Concomitant]
     Dates: start: 20050509

REACTIONS (1)
  - LYMPHADENOPATHY [None]
